FAERS Safety Report 8156331-5 (Version None)
Quarter: 2012Q1

REPORT INFORMATION
  Report Type: 
  Country: None (occurrence: None)
  Receive Date: 20120222
  Receipt Date: 20110825
  Transmission Date: 20120608
  Serious: No
  Sender: FDA-Public Use
  Company Number: US-BRISTOL-MYERS SQUIBB COMPANY-16003675

PATIENT
  Age: 44 Year
  Sex: Female

DRUGS (1)
  1. KENALOG [Suspect]

REACTIONS (2)
  - INJECTION SITE ATROPHY [None]
  - INJECTION SITE PAIN [None]
